FAERS Safety Report 5877876-4 (Version None)
Quarter: 2008Q3

REPORT INFORMATION
  Report Type: 
  Country: None (occurrence: None)
  Receive Date: 20080911
  Receipt Date: 20080902
  Transmission Date: 20090109
  Serious: Yes (Other)
  Sender: FDA-Public Use
  Company Number: BR-JNJFOC-20080900876

PATIENT
  Sex: Female
  Weight: 61 kg

DRUGS (3)
  1. REMICADE [Suspect]
     Indication: ANKYLOSING SPONDYLITIS
     Route: 042
  2. HYDROCORTISONE TAB [Concomitant]
     Indication: ANTIALLERGIC THERAPY
     Route: 042
  3. PROMETHAZINE [Concomitant]
     Indication: ANTIALLERGIC THERAPY
     Route: 030

REACTIONS (4)
  - ASPHYXIA [None]
  - ERYTHEMA [None]
  - INFUSION RELATED REACTION [None]
  - RESPIRATORY DISORDER [None]
